FAERS Safety Report 7866536-6 (Version None)
Quarter: 2011Q4

REPORT INFORMATION
  Report Type: 
  Country: None (occurrence: None)
  Receive Date: 20111028
  Receipt Date: 20110701
  Transmission Date: 20120403
  Serious: No
  Sender: FDA-Public Use
  Company Number: US-GLAXOSMITHKLINE-A0934769A

PATIENT
  Age: 55 Year
  Sex: Female
  Weight: 94.5 kg

DRUGS (8)
  1. BENTYL [Concomitant]
  2. FLEXERIL [Concomitant]
  3. DILAUDID [Concomitant]
  4. ADVAIR DISKUS 100/50 [Suspect]
     Indication: ASTHMA
     Dosage: 1PUFF TWICE PER DAY
     Route: 055
     Dates: start: 20110628
  5. VALIUM [Concomitant]
  6. ZOCOR [Concomitant]
  7. CELEXA [Concomitant]
  8. NEXIUM [Concomitant]

REACTIONS (2)
  - STOMATITIS [None]
  - REVERSIBLE AIRWAYS OBSTRUCTION [None]
